FAERS Safety Report 7190660-7 (Version None)
Quarter: 2010Q4

REPORT INFORMATION
  Report Type: 
  Country: None (occurrence: None)
  Receive Date: 20101221
  Receipt Date: 20101221
  Transmission Date: 20110411
  Serious: Yes (Other)
  Sender: FDA-Public Use
  Company Number: None

PATIENT
  Sex: Female
  Weight: 127.0072 kg

DRUGS (1)
  1. ICY HOT NO MESS APPLICATOR 0090098-04 CHATTEM, INC [Suspect]
     Indication: NECK PAIN
     Dosage: ROLLED ON  1 TIME A DAY TOP
     Route: 061
     Dates: start: 20100924, end: 20100927

REACTIONS (2)
  - APPLICATION SITE BURN [None]
  - CHEMICAL INJURY [None]
